FAERS Safety Report 5468424-1 (Version None)
Quarter: 2007Q3

REPORT INFORMATION
  Report Type: 
  Country: None (occurrence: None)
  Receive Date: 20070926
  Receipt Date: 20070920
  Transmission Date: 20080115
  Serious: Yes (Hospitalization)
  Sender: FDA-Public Use
  Company Number: FR-BRISTOL-MYERS SQUIBB COMPANY-13916341

PATIENT
  Age: 17 Year
  Sex: Male

DRUGS (8)
  1. AMIKLIN [Suspect]
     Indication: ACUTE LYMPHOCYTIC LEUKAEMIA
     Dosage: AMIKLIN-POWDER AND SOLVENT FOR SOLUTION FOR INJECTION DOSAGE UNKNOWN
     Dates: start: 20070609, end: 20070614
  2. CIFLOX [Suspect]
     Indication: ACUTE LYMPHOCYTIC LEUKAEMIA
     Dates: start: 20070606, end: 20070612
  3. TRIFLUCAN [Suspect]
     Indication: ACUTE LYMPHOCYTIC LEUKAEMIA
     Dates: start: 20070604
  4. ZELITREX [Suspect]
     Indication: ACUTE LYMPHOCYTIC LEUKAEMIA
     Dates: start: 20070530
  5. FORTUM [Suspect]
     Indication: ACUTE LYMPHOCYTIC LEUKAEMIA
     Dates: start: 20070603
  6. EVOLTRA [Suspect]
     Indication: ACUTE LYMPHOCYTIC LEUKAEMIA
     Dates: start: 20070608, end: 20070612
  7. PLITICAN [Concomitant]
     Dosage: ALSO ADMINISTERED FROM PREIVIOUSLY FROM 04-MAY-2007 TO 17-MAY-2007.
     Dates: start: 20070610
  8. ACETAMINOPHEN [Concomitant]
     Dates: start: 20070606

REACTIONS (4)
  - OEDEMA PERIPHERAL [None]
  - PAIN IN EXTREMITY [None]
  - PRURITUS [None]
  - RASH [None]
